FAERS Safety Report 5112985-9 (Version None)
Quarter: 2006Q3

REPORT INFORMATION
  Report Type: 
  Country: None (occurrence: None)
  Receive Date: 20060920
  Receipt Date: 20060907
  Transmission Date: 20061208
  Serious: Yes (Hospitalization)
  Sender: FDA-Public Use
  Company Number: 2006PV020750

PATIENT
  Age: 45 Year
  Sex: Female

DRUGS (4)
  1. BYETTA [Suspect]
     Indication: DIABETES MELLITUS NON-INSULIN-DEPENDENT
     Dosage: SEE IMAGE
     Route: 058
     Dates: start: 20060601, end: 20060701
  2. BYETTA [Suspect]
     Indication: DIABETES MELLITUS NON-INSULIN-DEPENDENT
     Dosage: SEE IMAGE
     Route: 058
     Dates: start: 20060701
  3. PRANDIN [Concomitant]
  4. METFORMIN HCL [Concomitant]

REACTIONS (7)
  - BLOOD PRESSURE DECREASED [None]
  - COUGH [None]
  - CREPITATIONS [None]
  - LETHARGY [None]
  - PAIN [None]
  - POOR QUALITY DRUG ADMINISTERED [None]
  - PYREXIA [None]
